FAERS Safety Report 8090894-3 (Version None)
Quarter: 2012Q1

REPORT INFORMATION
  Report Type: 
  Country: None (occurrence: None)
  Receive Date: 20120125
  Receipt Date: 20120111
  Transmission Date: 20120608
  Serious: Yes (Death, Life-Threatening, Hospitalization, Other)
  Sender: FDA-Public Use
  Company Number: 2012MA000532

PATIENT
  Sex: Female
  Weight: 88.5 kg

DRUGS (14)
  1. MAGNESIUM OXIDE [Concomitant]
  2. SPIRONOLACTONE [Concomitant]
  3. AMIODARONE HCL [Concomitant]
  4. TORSEMIDE [Concomitant]
  5. BENZTROPINE MESYLATE [Concomitant]
  6. COREG [Concomitant]
  7. ALLOPURINOL [Concomitant]
  8. FERROUS SULFATE TAB [Concomitant]
  9. POTASSIUM CHLORIDE [Concomitant]
  10. TRAZODONE HCL [Concomitant]
  11. CAPTOPRIL [Concomitant]
  12. NEXIUM [Concomitant]
  13. DIGOXIN [Suspect]
     Dosage: 0.125 MG;QD;PO
     Route: 048
     Dates: start: 20070312, end: 20080308
  14. COUMADIN [Concomitant]

REACTIONS (30)
  - CARDIAC FLUTTER [None]
  - HEADACHE [None]
  - TRICUSPID VALVE INCOMPETENCE [None]
  - DEEP VEIN THROMBOSIS [None]
  - PULSE ABSENT [None]
  - ACUTE MYOCARDIAL INFARCTION [None]
  - CARDIAC FAILURE CONGESTIVE [None]
  - EJECTION FRACTION DECREASED [None]
  - PNEUMONITIS [None]
  - DYSPNOEA [None]
  - RESPIRATORY FAILURE [None]
  - RENAL FAILURE [None]
  - AORTIC VALVE SCLEROSIS [None]
  - CONDUCTION DISORDER [None]
  - CARDIAC ARREST [None]
  - LEFT ATRIAL DILATATION [None]
  - AORTIC VALVE INCOMPETENCE [None]
  - ATRIAL FIBRILLATION [None]
  - VENTRICULAR FIBRILLATION [None]
  - UNRESPONSIVE TO STIMULI [None]
  - CARDIOMYOPATHY [None]
  - CHEST PAIN [None]
  - SUPRAPUBIC PAIN [None]
  - APNOEA [None]
  - LEUKOCYTOSIS [None]
  - HYPOKALAEMIA [None]
  - ELECTROCARDIOGRAM T WAVE ABNORMAL [None]
  - HYPOXIC-ISCHAEMIC ENCEPHALOPATHY [None]
  - PNEUMONIA ASPIRATION [None]
  - MITRAL VALVE INCOMPETENCE [None]
